FAERS Safety Report 15248998 (Version 4)
Quarter: 2018Q4

REPORT INFORMATION
  Report Type: Spontaneous
  Country: US (occurrence: US)
  Receive Date: 20180807
  Receipt Date: 20181017
  Transmission Date: 20190204
  Serious: No
  Sender: FDA-Public Use
  Company Number: US-PFIZER INC-2018315268

PATIENT
  Age: 30 Year
  Sex: Male
  Weight: 62 kg

DRUGS (5)
  1. UCERIS [Concomitant]
     Active Substance: BUDESONIDE
     Dosage: 90 MG, UNK
  2. ASACOL HD [Concomitant]
     Active Substance: MESALAMINE
     Dosage: 800 MG, UNK
  3. UCERIS [Concomitant]
     Active Substance: BUDESONIDE
     Indication: COLITIS ULCERATIVE
     Dosage: 10 MG, 1X/DAY
     Route: 048
  4. XELJANZ [Suspect]
     Active Substance: TOFACITINIB CITRATE
     Indication: COLITIS ULCERATIVE
     Dosage: 10 MG, 2X/DAY
     Route: 048
     Dates: start: 20180626
  5. CANASA [Concomitant]
     Active Substance: MESALAMINE
     Indication: COLITIS ULCERATIVE
     Dosage: 1 DF, 1X/DAY (1 TIME PER NIGHT)

REACTIONS (6)
  - Colitis [Unknown]
  - Nausea [Unknown]
  - Abdominal pain [Unknown]
  - Headache [Not Recovered/Not Resolved]
  - Abdominal distension [Unknown]
  - Abdominal tenderness [Unknown]

NARRATIVE: CASE EVENT DATE: 2018
